FAERS Safety Report 16173582 (Version 1)
Quarter: 2019Q2

REPORT INFORMATION
  Report Type: Spontaneous
  Country: US (occurrence: US)
  Receive Date: 20190409
  Receipt Date: 20190409
  Transmission Date: 20190711
  Serious: Yes (Other)
  Sender: FDA-Public Use
  Company Number: US-ASSERTIO THERAPEUTICS, INC.-US-2019DEP000338

PATIENT
  Age: 36 Year
  Sex: Female

DRUGS (1)
  1. CAMBIA [Suspect]
     Active Substance: DICLOFENAC POTASSIUM
     Indication: MIGRAINE WITHOUT AURA
     Dosage: 50 MG, AT ONSET OF MIGRAINE
     Route: 048
     Dates: start: 20190320

REACTIONS (4)
  - Cataplexy [Unknown]
  - Limb injury [Unknown]
  - Fall [Unknown]
  - Muscle strain [Unknown]

NARRATIVE: CASE EVENT DATE: 20190401
